FAERS Safety Report 17662031 (Version 2)
Quarter: 2020Q2

REPORT INFORMATION
  Report Type: Report from Study
  Country: FR (occurrence: FR)
  Receive Date: 20200413
  Receipt Date: 20200413
  Transmission Date: 20200713
  Serious: Yes (Other)
  Sender: FDA-Public Use
  Company Number: FR-PFIZER INC-2020146799

PATIENT
  Age: 58 Year
  Sex: Male

DRUGS (10)
  1. IRINOTECAN HCL [Suspect]
     Active Substance: IRINOTECAN HYDROCHLORIDE
     Indication: COLORECTAL CANCER METASTATIC
     Dosage: UNK, QCY
     Route: 042
     Dates: start: 20151203, end: 20151203
  2. AFLIBERCEPT [Suspect]
     Active Substance: AFLIBERCEPT
     Indication: COLORECTAL CANCER METASTATIC
     Dosage: 460 MG, QCY
     Route: 042
     Dates: start: 20160707, end: 20160707
  3. FLUOROURACIL. [Suspect]
     Active Substance: FLUOROURACIL
     Indication: COLORECTAL CANCER METASTATIC
     Dosage: UNK, QCY
     Route: 040
     Dates: start: 20160707, end: 20160707
  4. FLUOROURACIL. [Suspect]
     Active Substance: FLUOROURACIL
     Dosage: 800 MG, QCY
     Route: 040
     Dates: start: 20160707, end: 20160707
  5. FLUOROURACIL. [Suspect]
     Active Substance: FLUOROURACIL
     Dosage: 4800 MG, QCY
     Route: 042
     Dates: start: 20160707, end: 20160707
  6. FOLINIC ACID [Suspect]
     Active Substance: LEUCOVORIN
     Indication: COLORECTAL CANCER METASTATIC
     Dosage: 471 MG, QCY
     Route: 042
     Dates: start: 20151203, end: 20151203
  7. AFLIBERCEPT [Suspect]
     Active Substance: AFLIBERCEPT
     Dosage: UNK, QCY
     Route: 042
     Dates: start: 20151203, end: 20151203
  8. FLUOROURACIL. [Suspect]
     Active Substance: FLUOROURACIL
     Dosage: UNK, QCY
     Route: 042
     Dates: start: 20151203, end: 20151203
  9. IRINOTECAN HCL [Suspect]
     Active Substance: IRINOTECAN HYDROCHLORIDE
     Dosage: 360 MG, QCY
     Route: 042
     Dates: start: 20160707, end: 20160707
  10. FOLINIC ACID [Suspect]
     Active Substance: LEUCOVORIN
     Dosage: UNK, QCY
     Route: 042
     Dates: start: 20160707, end: 20160707

REACTIONS (1)
  - Proteinuria [Recovered/Resolved]

NARRATIVE: CASE EVENT DATE: 20160721
